FAERS Safety Report 7714785-X (Version None)
Quarter: 2011Q3

REPORT INFORMATION
  Report Type: 
  Country: None (occurrence: None)
  Receive Date: 20110829
  Receipt Date: 20110822
  Transmission Date: 20111222
  Serious: Yes (Hospitalization, Other)
  Sender: FDA-Public Use
  Company Number: US-BAYER-201042139NA

PATIENT
  Sex: Female
  Weight: 98 kg

DRUGS (6)
  1. YASMIN [Suspect]
     Dosage: UNK UNK, UNK
     Route: 048
     Dates: start: 20061001, end: 20071101
  2. DETROL LA [Concomitant]
     Dosage: 4 MG, UNK
     Dates: start: 20071022
  3. ZEGERID [Concomitant]
     Dosage: UNK
     Dates: start: 20050101
  4. PROVENTIL [Concomitant]
  5. MACROBID [Concomitant]
     Dosage: 100 MG, UNK
     Dates: start: 20071022
  6. HYOSCYAMINE [Concomitant]
     Dosage: 0.125 MG, UNK
     Dates: start: 20071022

REACTIONS (4)
  - CHOLELITHIASIS [None]
  - PULMONARY EMBOLISM [None]
  - GALLBLADDER DISORDER [None]
  - CHOLECYSTITIS CHRONIC [None]
